FAERS Safety Report 7434918-2 (Version None)
Quarter: 2011Q2

REPORT INFORMATION
  Report Type: 
  Country: None (occurrence: None)
  Receive Date: 20110418
  Receipt Date: 20110331
  Transmission Date: 20111010
  Serious: Yes (Other)
  Sender: FDA-Public Use
  Company Number: 026832

PATIENT
  Sex: Male
  Weight: 10 kg

DRUGS (2)
  1. NOOTROPYL(NOOTROPYL) [Suspect]
     Indication: EPILEPSY
     Dosage: 500 MG TID ORAL
     Route: 048
  2. KEPPRA [Suspect]
     Indication: MYOCLONIC EPILEPSY
     Dosage: (250 MG BID ORAL)
     Route: 048
     Dates: start: 20100801

REACTIONS (10)
  - SYRINGE ISSUE [None]
  - WRONG TECHNIQUE IN DRUG USAGE PROCESS [None]
  - DEVICE MALFUNCTION [None]
  - MALAISE [None]
  - DEVICE MISUSE [None]
  - PRODUCT QUALITY ISSUE [None]
  - DEVICE OCCLUSION [None]
  - ASPIRATION [None]
  - DYSPNOEA [None]
  - INCORRECT DRUG ADMINISTRATION RATE [None]
